FAERS Safety Report 21837613 (Version 2)
Quarter: 2023Q1

REPORT INFORMATION
  Report Type: Spontaneous
  Country: US (occurrence: US)
  Receive Date: 20230109
  Receipt Date: 20230307
  Transmission Date: 20230417
  Serious: Yes (Other)
  Sender: FDA-Public Use
  Company Number: US-PFIZER INC-202300004935

PATIENT
  Age: 49 Year
  Sex: Female

DRUGS (1)
  1. DIAZEPAM [Suspect]
     Active Substance: DIAZEPAM
     Dosage: UNK
     Route: 042

REACTIONS (5)
  - Myasthenia gravis [Unknown]
  - Respiratory failure [Unknown]
  - Quality of life decreased [Unknown]
  - Dyspnoea [Unknown]
  - Tachycardia [Unknown]
